FAERS Safety Report 8824687 (Version 2)
Quarter: 2012Q4

REPORT INFORMATION
  Report Type: 
  Country: DE (occurrence: DE)
  Receive Date: 20121004
  Receipt Date: 20121029
  Transmission Date: 20130627
  Serious: Yes (Hospitalization)
  Sender: FDA-Public Use
  Company Number: DE-ACTELION-A-CH2012-71300

PATIENT
  Age: 3 Year
  Sex: Female
  Weight: 14 kg

DRUGS (1)
  1. ZAVESCA [Suspect]
     Indication: LIPIDOSIS
     Dosage: 50 mg, tid
     Route: 048

REACTIONS (2)
  - Convulsion [Unknown]
  - Constipation [Recovered/Resolved]
